FAERS Safety Report 5870428-1 (Version None)
Quarter: 2008Q3

REPORT INFORMATION
  Report Type: 
  Country: None (occurrence: None)
  Receive Date: 20080904
  Receipt Date: 20080826
  Transmission Date: 20090109
  Serious: Yes (Other)
  Sender: FDA-Public Use
  Company Number: JP-JNJFOC-20080806338

PATIENT
  Sex: Female

DRUGS (5)
  1. REMICADE [Suspect]
     Dosage: 2 DOSES
     Route: 042
  2. REMICADE [Suspect]
     Indication: RHEUMATOID ARTHRITIS
     Dosage: 2 DOSES ON UNKNOWN DATES
     Route: 042
  3. METHOTREXATE SODIUM [Concomitant]
     Indication: RHEUMATOID ARTHRITIS
     Route: 048
  4. TALION [Concomitant]
     Route: 048
  5. FAMOTIDINE [Concomitant]
     Route: 048

REACTIONS (3)
  - BLOOD PRESSURE DIASTOLIC INCREASED [None]
  - INFUSION RELATED REACTION [None]
  - SHOCK [None]
